FAERS Safety Report 17489570 (Version 3)
Quarter: 2020Q2

REPORT INFORMATION
  Report Type: Report from Study
  Country: US (occurrence: US)
  Receive Date: 20200303
  Receipt Date: 20200630
  Transmission Date: 20200713
  Serious: Yes (Other)
  Sender: FDA-Public Use
  Company Number: NVSC2020US061064

PATIENT
  Age: 52 Year
  Sex: Female
  Weight: 83.45 kg

DRUGS (3)
  1. FULVESTRANT. [Concomitant]
     Active Substance: FULVESTRANT
     Indication: BREAST CANCER
     Dosage: 500 MG (LIQUID)
     Route: 030
     Dates: start: 20191015, end: 20200110
  2. PIQRAY [Suspect]
     Active Substance: ALPELISIB
     Dosage: 500 MG
     Route: 048
     Dates: start: 20191015, end: 20200215
  3. PIQRAY [Suspect]
     Active Substance: ALPELISIB
     Indication: BREAST CANCER
     Dosage: UNK
     Route: 065

REACTIONS (2)
  - Metastases to liver [Not Recovered/Not Resolved]
  - Drug ineffective [Unknown]

NARRATIVE: CASE EVENT DATE: 20200207
